FAERS Safety Report 6863693-5 (Version None)
Quarter: 2010Q3

REPORT INFORMATION
  Report Type: 
  Country: None (occurrence: None)
  Receive Date: 20100721
  Receipt Date: 20080306
  Transmission Date: 20110219
  Serious: No
  Sender: FDA-Public Use
  Company Number: US-PFIZER INC-2008022814

PATIENT
  Sex: Female
  Weight: 68.181 kg

DRUGS (2)
  1. CHANTIX [Suspect]
     Indication: SMOKING CESSATION THERAPY
     Dates: start: 20080201, end: 20080305
  2. SYNTHROID [Concomitant]

REACTIONS (3)
  - INFLUENZA [None]
  - MALAISE [None]
  - NAUSEA [None]
